FAERS Safety Report 14133745 (Version 4)
Quarter: 2019Q1

REPORT INFORMATION
  Report Type: Spontaneous
  Country: US (occurrence: US)
  Receive Date: 20171027
  Receipt Date: 20190307
  Transmission Date: 20190417
  Serious: No
  Sender: FDA-Public Use
  Company Number: US-PFIZER INC-2017460572

PATIENT
  Age: 60 Year
  Sex: Female

DRUGS (17)
  1. TAXOTERE [Concomitant]
     Active Substance: DOCETAXEL
     Indication: CHEMOTHERAPY
     Dosage: UNK
  2. DOCETAXEL. [Suspect]
     Active Substance: DOCETAXEL
     Indication: BREAST CANCER METASTATIC
     Dosage: 124-155 MG, CYCLIC (EVERY THREE WEEKS, 05 CYCLES)
     Dates: start: 20140609, end: 20140915
  3. DOCETAXEL ACCORD [Suspect]
     Active Substance: DOCETAXEL
     Indication: BREAST CANCER METASTATIC
     Dosage: 124-155 MG, CYCLIC (EVERY THREE WEEKS, 05 CYCLES)
     Dates: start: 20140609, end: 20140915
  4. CARBOPLATIN. [Concomitant]
     Active Substance: CARBOPLATIN
     Indication: CHEMOTHERAPY
     Dosage: UNK
  5. HERCEPTIN [Concomitant]
     Active Substance: TRASTUZUMAB
     Indication: CHEMOTHERAPY
     Dosage: UNK
  6. PRAVASTATIN. [Concomitant]
     Active Substance: PRAVASTATIN
     Dosage: UNK
     Dates: start: 2009
  7. NEOSAR [Concomitant]
     Active Substance: CYCLOPHOSPHAMIDE
     Indication: CHEMOTHERAPY
     Dosage: UNK
  8. LEVOTHYROXINE. [Concomitant]
     Active Substance: LEVOTHYROXINE
     Indication: HORMONE THERAPY
     Dosage: UNK
     Dates: start: 2016
  9. DOCETAXEL. [Suspect]
     Active Substance: DOCETAXEL
     Indication: METASTASES TO LYMPH NODES
  10. GABAPENTIN. [Concomitant]
     Active Substance: GABAPENTIN
     Dosage: UNK
     Dates: start: 2006
  11. ROBAXIN [Concomitant]
     Active Substance: METHOCARBAMOL
     Dosage: UNK
     Dates: start: 2009
  12. SYNTHROID [Concomitant]
     Active Substance: LEVOTHYROXINE SODIUM
     Indication: HORMONE THERAPY
     Dosage: UNK
     Dates: start: 2000
  13. HCTZ [Concomitant]
     Active Substance: HYDROCHLOROTHIAZIDE
     Dosage: UNK
     Dates: start: 2009
  14. DOCETAXEL ACCORD [Suspect]
     Active Substance: DOCETAXEL
     Indication: METASTASES TO LYMPH NODES
  15. NEURONTIN [Concomitant]
     Active Substance: GABAPENTIN
     Dosage: UNK
     Dates: start: 2009
  16. METFORMIN [Concomitant]
     Active Substance: METFORMIN HYDROCHLORIDE
     Dosage: UNK
     Dates: start: 2008
  17. METHOCARBAMOL. [Concomitant]
     Active Substance: METHOCARBAMOL
     Dosage: UNK
     Dates: start: 2006

REACTIONS (5)
  - Hair colour changes [Unknown]
  - Depression [Not Recovered/Not Resolved]
  - Hair texture abnormal [Unknown]
  - Hair disorder [Unknown]
  - Alopecia [Not Recovered/Not Resolved]

NARRATIVE: CASE EVENT DATE: 201406
